FAERS Safety Report 13697648 (Version 1)
Quarter: 2017Q2

REPORT INFORMATION
  Report Type: Report from Study
  Country: US (occurrence: US)
  Receive Date: 20170628
  Receipt Date: 20170628
  Transmission Date: 20170830
  Serious: Yes (Hospitalization, Other)
  Sender: FDA-Public Use
  Company Number: US-UCBSA-2017024486

PATIENT
  Sex: Male

DRUGS (5)
  1. DEPAKOTE [Concomitant]
     Active Substance: DIVALPROEX SODIUM
     Indication: PRODUCT USED FOR UNKNOWN INDICATION
  2. BANZEL [Concomitant]
     Active Substance: RUFINAMIDE
     Indication: PRODUCT USED FOR UNKNOWN INDICATION
     Dosage: UNK
  3. LACOSAMIDE. [Suspect]
     Active Substance: LACOSAMIDE
     Indication: PRODUCT USED FOR UNKNOWN INDICATION
     Dosage: UNK
  4. BANZEL [Concomitant]
     Active Substance: RUFINAMIDE
     Dosage: INCREASED TO 1200 MG
  5. KEPPRA [Suspect]
     Active Substance: LEVETIRACETAM
     Indication: PRODUCT USED FOR UNKNOWN INDICATION
     Dosage: 1000 MG, 3X/DAY (TID) (AM, LUNCH AND PM)

REACTIONS (6)
  - Head injury [Unknown]
  - Amnesia [Unknown]
  - Generalised tonic-clonic seizure [Unknown]
  - Muscle twitching [Unknown]
  - Fall [Unknown]
  - Intentional product misuse [Unknown]
